FAERS Safety Report 9176813 (Version 1)
Quarter: 2013Q1

REPORT INFORMATION
  Report Type: Spontaneous
  Country: BE (occurrence: BE)
  Receive Date: 20130321
  Receipt Date: 20130321
  Transmission Date: 20140127
  Serious: Yes (Other)
  Sender: FDA-Public Use
  Company Number: PHHY2013BE026830

PATIENT
  Age: 69 Year
  Sex: Male
  Weight: 85 kg

DRUGS (7)
  1. ZOMETA [Suspect]
     Indication: METASTASES TO BONE
     Dosage: 4 MG, EVERY 4 WEEKS
     Dates: start: 2007, end: 201204
  2. DECAPEPTYL-CR [Concomitant]
     Indication: PROSTATE CANCER
     Dosage: 375 UNK, MONTHLY
     Route: 042
  3. TAXOTERE [Concomitant]
     Indication: PROSTATE CANCER
     Dosage: UNK UKN, UNK
     Route: 042
  4. EMCORETIC [Concomitant]
     Dosage: (5MG + 12.5 MG) DAILY
     Route: 048
  5. FLUOXETINE [Concomitant]
     Dosage: 20 MG, DAILY
     Route: 048
  6. RIVOTRIL [Concomitant]
     Indication: SLEEP DISORDER
     Dosage: 6 DROPS, DAILY
     Route: 048
  7. ZOLPIDEM [Concomitant]
     Dosage: 5 MG, DAILY
     Route: 048

REACTIONS (3)
  - Osteonecrosis of jaw [Recovered/Resolved]
  - Abscess [Recovered/Resolved]
  - Chronic sinusitis [Recovered/Resolved]
